FAERS Safety Report 25498697 (Version 1)
Quarter: 2025Q3

REPORT INFORMATION
  Report Type: Spontaneous
  Country: CN (occurrence: CN)
  Receive Date: 20250701
  Receipt Date: 20250701
  Transmission Date: 20251021
  Serious: Yes (Hospitalization, Other)
  Sender: MYLAN
  Company Number: CN-MYLANLABS-2025M1054147

PATIENT
  Age: 53 Year
  Sex: Female
  Weight: 53 kg

DRUGS (8)
  1. CELEBREX [Suspect]
     Active Substance: CELECOXIB
     Indication: Antiinflammatory therapy
     Dosage: 0.2 GRAM, BID (TWICE A DAY, 1.0 CAPSULE EACH TIME)
     Dates: start: 20250521, end: 20250601
  2. CELEBREX [Suspect]
     Active Substance: CELECOXIB
     Indication: Analgesic therapy
  3. DICLOFENAC DIETHYLAMINE [Suspect]
     Active Substance: DICLOFENAC DIETHYLAMINE
     Indication: Antiinflammatory therapy
     Dosage: 0.1 GRAM, TID
     Dates: start: 20250521, end: 20250601
  4. DICLOFENAC DIETHYLAMINE [Suspect]
     Active Substance: DICLOFENAC DIETHYLAMINE
     Indication: Analgesic therapy
  5. EPERISONE HYDROCHLORIDE [Concomitant]
     Active Substance: EPERISONE HYDROCHLORIDE
     Indication: Hypotonia
     Dosage: 50 MILLIGRAM, TID (THREE TIMES A DAY, 1.0 TABLET EACH TIME)
     Dates: start: 20250521, end: 20250601
  6. METHYLCOBALAMIN [Concomitant]
     Active Substance: METHYLCOBALAMIN
     Indication: Vitamin supplementation
     Dosage: 0.5 MILLIGRAM, TID (THREE TIMES A DAY, 1.0 TABLET EACH TIME)
     Dates: start: 20250521, end: 20250601
  7. Tong zhi su run jiang [Concomitant]
     Indication: Swelling
     Dosage: 5 DOSAGE FORM, BID (TWICE A DAY, 5.0 CAPSULES EACH TIME)
     Dates: start: 20250521, end: 20250601
  8. Tong zhi su run jiang [Concomitant]
     Indication: Analgesic therapy

REACTIONS (3)
  - Rash erythematous [Recovering/Resolving]
  - Pruritus [Recovering/Resolving]
  - Flushing [Recovering/Resolving]

NARRATIVE: CASE EVENT DATE: 20250601
